FAERS Safety Report 9982023 (Version 2)
Quarter: 2014Q1

REPORT INFORMATION
  Report Type: Report from Study
  Country: US (occurrence: US)
  Receive Date: 20140307
  Receipt Date: 20140307
  Transmission Date: 20141002
  Serious: No
  Sender: FDA-Public Use
  Company Number: US-ABBVIE-13P-163-1142081-00

PATIENT
  Sex: Female
  Weight: 88.53 kg

DRUGS (11)
  1. HUMIRA [Suspect]
     Indication: PSORIATIC ARTHROPATHY
     Route: 058
  2. HUMIRA [Suspect]
     Indication: PSORIASIS
  3. HUMIRA [Suspect]
     Indication: PSORIASIS
  4. DIOVAN HCT [Concomitant]
     Indication: HYPERTENSION
  5. EFFEXOR [Concomitant]
     Indication: HOT FLUSH
  6. CRESTOR [Concomitant]
     Indication: BLOOD CHOLESTEROL INCREASED
  7. BABY ASPIRIN [Concomitant]
     Indication: ANTICOAGULANT THERAPY
  8. BABY ASPIRIN [Concomitant]
     Indication: ROUTINE HEALTH MAINTENANCE
  9. LEFLUNOMIDE [Concomitant]
     Indication: PSORIATIC ARTHROPATHY
  10. LEFLUNOMIDE [Concomitant]
     Indication: PSORIASIS
  11. VITAMINS [Concomitant]
     Indication: VITAMIN SUPPLEMENTATION

REACTIONS (2)
  - Unevaluable event [Not Recovered/Not Resolved]
  - Unevaluable event [Not Recovered/Not Resolved]
